FAERS Safety Report 9240311 (Version 2)
Quarter: 2013Q2

REPORT INFORMATION
  Report Type: Spontaneous
  Country: US (occurrence: US)
  Receive Date: 20130418
  Receipt Date: 20130424
  Transmission Date: 20140414
  Serious: Yes (Hospitalization)
  Sender: FDA-Public Use
  Company Number: US-GILEAD-2013-0072177

PATIENT
  Sex: Female

DRUGS (5)
  1. LETAIRIS [Suspect]
     Indication: PULMONARY HYPERTENSION
     Dosage: 10 MG, QD
     Dates: start: 20100202
  2. LETAIRIS [Suspect]
     Indication: LUNG NEOPLASM
     Dosage: 10 MG, QD
     Dates: start: 20100201
  3. LETAIRIS [Suspect]
     Indication: THROMBOTIC MICROANGIOPATHY
  4. TYVASO [Concomitant]
  5. REVATIO [Concomitant]

REACTIONS (4)
  - Mouth haemorrhage [Unknown]
  - Tooth socket haemorrhage [Unknown]
  - Thrombocytopenia [Unknown]
  - Nausea [Unknown]
